FAERS Safety Report 7784844-4 (Version None)
Quarter: 2011Q3

REPORT INFORMATION
  Report Type: 
  Country: None (occurrence: None)
  Receive Date: 20110928
  Receipt Date: 20110926
  Transmission Date: 20111222
  Serious: Yes (Life-Threatening)
  Sender: FDA-Public Use
  Company Number: FR-PFIZER INC-2011229602

PATIENT
  Age: 39 Year
  Sex: Female

DRUGS (4)
  1. PROPRANOLOL [Suspect]
     Indication: CARDIAC DISORDER
  2. RELPAX [Concomitant]
     Indication: MIGRAINE
  3. PROPRANOLOL [Suspect]
     Indication: MIGRAINE PROPHYLAXIS
     Dosage: 40 MG, DAILY
     Route: 048
     Dates: start: 20100301, end: 20100301
  4. INDORAMIN [Suspect]
     Indication: MIGRAINE PROPHYLAXIS
     Dosage: 25 MG, DAILY
     Route: 048
     Dates: start: 20091101, end: 20100301

REACTIONS (1)
  - CARDIO-RESPIRATORY ARREST [None]
